FAERS Safety Report 9374839 (Version 1)
Quarter: 2013Q2

REPORT INFORMATION
  Report Type: Spontaneous
  Country: US (occurrence: US)
  Receive Date: 20130628
  Receipt Date: 20130628
  Transmission Date: 20140414
  Serious: No
  Sender: FDA-Public Use
  Company Number: US-GLAXOSMITHKLINE-A0992581A

PATIENT
  Age: 62 Year
  Sex: Female

DRUGS (5)
  1. ZYBAN [Suspect]
     Indication: DEPRESSION
     Route: 048
     Dates: start: 201208
  2. THYROID MEDICATION [Concomitant]
  3. TRAZODONE [Concomitant]
  4. ESTRATEST [Concomitant]
  5. QVAR [Concomitant]

REACTIONS (2)
  - Depression [Unknown]
  - Drug administration error [Unknown]
